FAERS Safety Report 4895551-X (Version None)
Quarter: 2006Q1

REPORT INFORMATION
  Report Type: 
  Country: None (occurrence: None)
  Receive Date: 20060125
  Receipt Date: 20060112
  Transmission Date: 20060701
  Serious: Yes (Hospitalization, Other)
  Sender: FDA-Public Use
  Company Number: 2006008372

PATIENT
  Sex: Female
  Weight: 57.6068 kg

DRUGS (11)
  1. LIPITOR [Suspect]
     Indication: BLOOD CHOLESTEROL INCREASED
     Dosage: 10 MG (10 MG, 1 IN 1 D), ORAL
     Route: 048
  2. LOPID [Suspect]
     Indication: BLOOD CHOLESTEROL INCREASED
  3. MEVACOR [Suspect]
     Indication: BLOOD CHOLESTEROL INCREASED
  4. ZOCOR [Suspect]
     Indication: BLOOD CHOLESTEROL INCREASED
  5. NORVASC [Concomitant]
  6. TOPROL-XL [Concomitant]
  7. LASIX [Concomitant]
  8. POTASSIUM CHLORIDE [Concomitant]
  9. ENALAPRIL MALEATE [Concomitant]
  10. VITAMINS (VITAMINS) [Concomitant]
  11. ECOTRIN (ACETYLSALICYLIC ACID) [Concomitant]

REACTIONS (12)
  - ABDOMINAL DISTENSION [None]
  - DEAFNESS [None]
  - DEHYDRATION [None]
  - DIARRHOEA [None]
  - FATIGUE [None]
  - HEART RATE INCREASED [None]
  - HEPATIC ENZYME INCREASED [None]
  - IRRITABLE BOWEL SYNDROME [None]
  - LETHARGY [None]
  - LOW DENSITY LIPOPROTEIN INCREASED [None]
  - PAIN IN EXTREMITY [None]
  - VOMITING [None]
